FAERS Safety Report 7380724-7 (Version None)
Quarter: 2011Q1

REPORT INFORMATION
  Report Type: 
  Country: None (occurrence: None)
  Receive Date: 20110329
  Receipt Date: 20100531
  Transmission Date: 20110831
  Serious: Yes (Other)
  Sender: FDA-Public Use
  Company Number: JP-BAYER-200910219BYL

PATIENT
  Age: 65 Year
  Sex: Male

DRUGS (3)
  1. NEXAVAR [Suspect]
     Indication: RENAL CELL CARCINOMA
     Dosage: 800 MG (DAILY DOSE), , ORAL
     Route: 048
     Dates: start: 20081003, end: 20081211
  2. LASIX [Concomitant]
     Indication: PROPHYLAXIS
     Dosage: 20 MG (DAILY DOSE), , ORAL
     Route: 048
     Dates: start: 20090925
  3. NEXAVAR [Suspect]
     Dosage: 400 MG (DAILY DOSE), , ORAL
     Route: 048
     Dates: start: 20090116

REACTIONS (9)
  - PALMAR-PLANTAR ERYTHRODYSAESTHESIA SYNDROME [None]
  - HAEMOGLOBIN DECREASED [None]
  - HYPERTENSION [None]
  - HEPATIC FUNCTION ABNORMAL [None]
  - HYPOPHOSPHATAEMIA [None]
  - DIARRHOEA [None]
  - RASH [None]
  - ALOPECIA [None]
  - PLATELET COUNT DECREASED [None]
